FAERS Safety Report 7287704-0 (Version None)
Quarter: 2011Q1

REPORT INFORMATION
  Report Type: 
  Country: None (occurrence: None)
  Receive Date: 20110208
  Receipt Date: 20110208
  Transmission Date: 20110831
  Serious: Yes (Other)
  Sender: FDA-Public Use
  Company Number: None

PATIENT
  Age: 51 Year
  Sex: Female
  Weight: 73.4827 kg

DRUGS (1)
  1. AZITHROMYCIN [Suspect]
     Indication: UPPER RESPIRATORY TRACT INFECTION
     Dosage: 2 TABLETS, THEN 1 DAILY PO
     Route: 048
     Dates: start: 20110204, end: 20110204

REACTIONS (2)
  - UPPER RESPIRATORY TRACT INFECTION [None]
  - EYELID OEDEMA [None]
